FAERS Safety Report 20091038 (Version 14)
Quarter: 2025Q3

REPORT INFORMATION
  Report Type: Spontaneous
  Country: US (occurrence: US)
  Receive Date: 20211119
  Receipt Date: 20250929
  Transmission Date: 20251021
  Serious: Yes (Other)
  Sender: PFIZER
  Company Number: US-PFIZER INC-2021534670

PATIENT
  Age: 70 Year
  Sex: Female
  Weight: 104.33 kg

DRUGS (18)
  1. XELJANZ [Suspect]
     Active Substance: TOFACITINIB CITRATE
     Indication: Rheumatoid arthritis
     Dosage: 5 MG, 2X/DAY
     Route: 048
  2. DILTIAZEM [Concomitant]
     Active Substance: DILTIAZEM
  3. CEPHALEXIN [Concomitant]
     Active Substance: CEPHALEXIN
  4. XARELTO [Concomitant]
     Active Substance: RIVAROXABAN
  5. ASCORBIC ACID [Concomitant]
     Active Substance: ASCORBIC ACID
  6. VITAMIN D2 [Concomitant]
     Active Substance: ERGOCALCIFEROL
  7. VIT B COMPLEXE [NICOTINAMIDE;PANTOTHENATE SODIUM;PYRIDOXINE HYDROCHLOR [Concomitant]
  8. CRANBERRY [Concomitant]
     Active Substance: CRANBERRY
  9. FUROSEMIDE [Concomitant]
     Active Substance: FUROSEMIDE
  10. FLECAINIDE [Concomitant]
     Active Substance: FLECAINIDE
  11. DORZOLAMIDE [Concomitant]
     Active Substance: DORZOLAMIDE
  12. LATANOPROST [Concomitant]
     Active Substance: LATANOPROST
  13. MAGNESIUM [Concomitant]
     Active Substance: MAGNESIUM
  14. METOPROLOL [Concomitant]
     Active Substance: METOPROLOL
  15. PREDNISONE [Concomitant]
     Active Substance: PREDNISONE
  16. ROSUVASTATIN [Concomitant]
     Active Substance: ROSUVASTATIN
  17. SERTRALINE [Concomitant]
     Active Substance: SERTRALINE HYDROCHLORIDE
  18. ZINC [Concomitant]
     Active Substance: ZINC

REACTIONS (19)
  - Diabetes mellitus [Unknown]
  - Micrographic skin surgery [Unknown]
  - Skin cancer [Recovered/Resolved]
  - Urinary tract infection [Recovering/Resolving]
  - Orthodontic procedure [Unknown]
  - Sinusitis [Unknown]
  - Limb injury [Unknown]
  - Impaired healing [Not Recovered/Not Resolved]
  - Depression [Unknown]
  - Stress [Unknown]
  - Palpitations [Unknown]
  - Immune system disorder [Not Recovered/Not Resolved]
  - Macule [Not Recovered/Not Resolved]
  - Skin graft [Unknown]
  - Nervousness [Unknown]
  - Hypersensitivity [Unknown]
  - Localised infection [Not Recovered/Not Resolved]
  - Intercepted product prescribing error [Unknown]
  - Infection [Unknown]

NARRATIVE: CASE EVENT DATE: 20250101
